FAERS Safety Report 9826200 (Version 2)
Quarter: 2013Q4

REPORT INFORMATION
  Report Type: Spontaneous
  Country: US (occurrence: None)
  Receive Date: 20131223
  Receipt Date: 20131223
  Transmission Date: 20140711
  Serious: Yes (Other)
  Sender: FDA-Public Use
  Company Number: 221246LEO

PATIENT
  Sex: Female

DRUGS (1)
  1. PICATO (0.05 %, GEL) [Suspect]
     Indication: ACTINIC KERATOSIS
     Route: 061
     Dates: start: 20130413, end: 20130414

REACTIONS (3)
  - No adverse event [None]
  - Drug ineffective [None]
  - Drug administered at inappropriate site [None]
